FAERS Safety Report 16909796 (Version 3)
Quarter: 2019Q4

REPORT INFORMATION
  Report Type: Report from Study
  Country: US (occurrence: US)
  Receive Date: 20191011
  Receipt Date: 20191104
  Transmission Date: 20200122
  Serious: Yes (Death, Hospitalization, Other)
  Sender: FDA-Public Use
  Company Number: US-BRISTOL-MYERS SQUIBB COMPANY-BMS-2019-098308

PATIENT
  Age: 60 Year
  Sex: Female
  Weight: 59.4 kg

DRUGS (2)
  1. IPILIMUMAB [Suspect]
     Active Substance: IPILIMUMAB
     Indication: GALLBLADDER CANCER
     Dosage: 1 MILLIGRAM/KILOGRAM, OVER 60 MINUTES ON DAY 1
     Route: 042
     Dates: start: 20190819, end: 20190819
  2. NIVOLUMAB [Suspect]
     Active Substance: NIVOLUMAB
     Indication: GALLBLADDER CANCER
     Dosage: 240 MILLIGRAM, ON DAY 1, 15 AND 29
     Route: 042
     Dates: start: 20190819, end: 20190916

REACTIONS (3)
  - Bacteraemia [Unknown]
  - Hepatic failure [Fatal]
  - Muscular weakness [Unknown]

NARRATIVE: CASE EVENT DATE: 20190920
